FAERS Safety Report 8853418 (Version 1)
Quarter: 2012Q4

REPORT INFORMATION
  Report Type: 
  Country: US (occurrence: US)
  Receive Date: 20121022
  Receipt Date: 20121022
  Transmission Date: 20130627
  Serious: Yes (Death, Hospitalization)
  Sender: FDA-Public Use
  Company Number: US-GLAXOSMITHKLINE-A0867953A

PATIENT
  Age: 59 Year
  Sex: Male

DRUGS (1)
  1. AVANDIA [Suspect]
     Indication: DIABETES MELLITUS
     Dosage: 4MG Per day
     Route: 048
     Dates: start: 200502, end: 2007

REACTIONS (5)
  - Cardiac failure [Fatal]
  - Myocardial infarction [Unknown]
  - Pulmonary arterial hypertension [Unknown]
  - Cardiac failure [Unknown]
  - Cardiac failure congestive [Unknown]
